FAERS Safety Report 24713813 (Version 1)
Quarter: 2024Q4

REPORT INFORMATION
  Report Type: Spontaneous
  Country: FR (occurrence: FR)
  Receive Date: 20241209
  Receipt Date: 20241209
  Transmission Date: 20250114
  Serious: Yes (Life-Threatening)
  Sender: PURDUE
  Company Number: FR-PURDUE-USA-2024-0313824

PATIENT
  Age: 70 Year
  Sex: Female

DRUGS (2)
  1. OXYCODONE HYDROCHLORIDE [Suspect]
     Active Substance: OXYCODONE HYDROCHLORIDE
     Indication: Analgesic intervention supportive therapy
     Dosage: 40 MILLIGRAM, Q24H
     Route: 042
     Dates: start: 20211008, end: 20211010
  2. MIDAZOLAM [Suspect]
     Active Substance: MIDAZOLAM
     Indication: Analgesic intervention supportive therapy
     Dosage: 0.2 MILLIGRAM, Q1H
     Route: 042
     Dates: start: 20211008, end: 20211010

REACTIONS (1)
  - Hypercapnic coma [Recovered/Resolved]

NARRATIVE: CASE EVENT DATE: 20211010
